FAERS Safety Report 8819082 (Version 1)
Quarter: 2012Q4

REPORT INFORMATION
  Report Type: 
  Country: JP (occurrence: JP)
  Receive Date: 20121001
  Receipt Date: 20121001
  Transmission Date: 20130627
  Serious: Yes (Hospitalization)
  Sender: FDA-Public Use
  Company Number: JP-JNJFOC-20120713410

PATIENT
  Age: 70 Year
  Sex: Female
  Weight: 48 kg

DRUGS (26)
  1. FLORID [Suspect]
     Indication: BACTERIAL INFECTION
     Dosage: 5g 4 times a day
     Route: 049
     Dates: start: 20120702, end: 20120709
  2. FLORID [Suspect]
     Indication: ORAL FUNGAL INFECTION
     Dosage: 5g 4 times a day
     Route: 049
     Dates: start: 20120702, end: 20120709
  3. WARFARIN [Interacting]
     Indication: HEART VALVE REPLACEMENT
     Route: 048
     Dates: start: 20120724
  4. WARFARIN [Interacting]
     Indication: HEART VALVE REPLACEMENT
     Route: 048
     Dates: start: 20120710, end: 20120712
  5. WARFARIN [Interacting]
     Indication: HEART VALVE REPLACEMENT
     Route: 048
     Dates: start: 20120712, end: 20120714
  6. WARFARIN [Interacting]
     Indication: HEART VALVE REPLACEMENT
     Route: 048
     Dates: start: 20120715, end: 20120717
  7. WARFARIN [Interacting]
     Indication: HEART VALVE REPLACEMENT
     Route: 048
     Dates: start: 20120718, end: 20120720
  8. WARFARIN [Interacting]
     Indication: HEART VALVE REPLACEMENT
     Route: 048
     Dates: start: 20120722
  9. WARFARIN [Interacting]
     Indication: HEART VALVE REPLACEMENT
     Route: 048
     Dates: start: 20120704, end: 20120709
  10. WARFARIN [Interacting]
     Indication: HEART VALVE REPLACEMENT
     Route: 048
     Dates: start: 20120702
  11. WARFARIN [Interacting]
     Indication: ATRIAL FIBRILLATION
     Route: 048
     Dates: start: 20120702
  12. WARFARIN [Interacting]
     Indication: ATRIAL FIBRILLATION
     Route: 048
     Dates: start: 20120704, end: 20120709
  13. WARFARIN [Interacting]
     Indication: ATRIAL FIBRILLATION
     Route: 048
     Dates: start: 20120712, end: 20120714
  14. WARFARIN [Interacting]
     Indication: ATRIAL FIBRILLATION
     Route: 048
     Dates: start: 20120715, end: 20120717
  15. WARFARIN [Interacting]
     Indication: ATRIAL FIBRILLATION
     Route: 048
     Dates: start: 20120718, end: 20120720
  16. WARFARIN [Interacting]
     Indication: ATRIAL FIBRILLATION
     Route: 048
     Dates: start: 20120722
  17. WARFARIN [Interacting]
     Indication: ATRIAL FIBRILLATION
     Route: 048
     Dates: start: 20120724
  18. WARFARIN [Interacting]
     Indication: ATRIAL FIBRILLATION
     Route: 048
     Dates: start: 20120710, end: 20120712
  19. BAYASPIRIN [Concomitant]
     Indication: CARDIAC FAILURE CHRONIC
     Route: 048
     Dates: end: 20120709
  20. BAYASPIRIN [Concomitant]
     Indication: CARDIAC FAILURE CHRONIC
     Route: 048
     Dates: start: 20120715
  21. HALFDIGOXIN [Concomitant]
     Indication: CARDIAC FAILURE CHRONIC
     Route: 048
  22. ALDACTONE A [Concomitant]
     Route: 048
  23. AMLODIN [Concomitant]
     Route: 048
  24. ARTIST [Concomitant]
     Route: 048
  25. GASTER [Concomitant]
     Dosage: 40mg, 20mg
     Route: 048
  26. LASIX [Concomitant]
     Dosage: 80mg, 40mg
     Route: 048

REACTIONS (3)
  - International normalised ratio increased [Unknown]
  - Drug interaction [Unknown]
  - Haemorrhage [Unknown]
